FAERS Safety Report 9732787 (Version 1)
Quarter: 2013Q4

REPORT INFORMATION
  Report Type: Spontaneous
  Country: GB (occurrence: GB)
  Receive Date: 20131205
  Receipt Date: 20131205
  Transmission Date: 20140711
  Serious: Yes (Other)
  Sender: FDA-Public Use
  Company Number: GB-SA-2013SA125767

PATIENT
  Age: 73 Year
  Sex: Male

DRUGS (5)
  1. RIFAMPICIN [Suspect]
     Indication: PRODUCT USED FOR UNKNOWN INDICATION
     Route: 065
  2. CUBICIN [Suspect]
     Indication: ARTHRITIS INFECTIVE
     Route: 065
     Dates: start: 20130715
  3. CUBICIN [Suspect]
     Indication: OFF LABEL USE
     Route: 065
     Dates: start: 20130715
  4. CUBICIN [Suspect]
     Indication: ARTHRITIS INFECTIVE
  5. CUBICIN [Suspect]
     Indication: OFF LABEL USE

REACTIONS (5)
  - Eosinophilic pneumonia acute [Recovered/Resolved]
  - Dyspnoea [Unknown]
  - Pyrexia [Unknown]
  - Hypoxia [Unknown]
  - Cough [Unknown]
